FAERS Safety Report 6704218-4 (Version None)
Quarter: 2010Q2

REPORT INFORMATION
  Report Type: 
  Country: None (occurrence: None)
  Receive Date: 20100430
  Receipt Date: 20100420
  Transmission Date: 20101027
  Serious: Yes (Hospitalization)
  Sender: FDA-Public Use
  Company Number: GB-WATSON-2010-05598

PATIENT
  Age: 57 Year
  Sex: Female

DRUGS (2)
  1. FLUOROURACIL [Suspect]
     Indication: CERVIX CARCINOMA
     Dosage: 1 G/SQM
     Route: 042
  2. CISPLATIN [Suspect]
     Indication: CERVIX CARCINOMA
     Dosage: 75 MG/SQM
     Route: 042

REACTIONS (1)
  - TOXIC ENCEPHALOPATHY [None]
